FAERS Safety Report 8597084-6 (Version None)
Quarter: 2012Q3

REPORT INFORMATION
  Report Type: 
  Country: None (occurrence: None)
  Receive Date: 20120816
  Receipt Date: 20120808
  Transmission Date: 20120928
  Serious: Yes (Hospitalization)
  Sender: FDA-Public Use
  Company Number: US-BIOGENIDEC-2011BI047824

PATIENT
  Age: 51 Year
  Sex: Female

DRUGS (3)
  1. INTERFERON BETA-1A [Suspect]
     Indication: MULTIPLE SCLEROSIS
     Route: 030
     Dates: start: 20110222
  2. BACLOFEN [Concomitant]
     Dates: start: 20010101
  3. DILAUDID [Concomitant]
     Indication: BACK PAIN
     Dates: start: 20010101

REACTIONS (7)
  - SCOLIOSIS [None]
  - PROCEDURAL PAIN [None]
  - WEIGHT DECREASED [None]
  - RHEUMATOID ARTHRITIS [None]
  - SPINAL PAIN [None]
  - INFLAMMATION [None]
  - INTERVERTEBRAL DISC DEGENERATION [None]
